FAERS Safety Report 22167053 (Version 2)
Quarter: 2023Q2

REPORT INFORMATION
  Report Type: Spontaneous
  Country: CN (occurrence: CN)
  Receive Date: 20230403
  Receipt Date: 20230411
  Transmission Date: 20230722
  Serious: Yes (Other)
  Sender: FDA-Public Use
  Company Number: CN-Merck Healthcare KGaA-9391575

PATIENT
  Age: 78 Year
  Sex: Male
  Weight: 60 kg

DRUGS (4)
  1. ERBITUX [Suspect]
     Active Substance: CETUXIMAB
     Indication: Colon cancer
     Dosage: 600 MG, DAILY
     Route: 041
     Dates: start: 20230214, end: 20230214
  2. OXALIPLATIN [Suspect]
     Active Substance: OXALIPLATIN
     Indication: Colon cancer
     Dosage: 150 MG, DAILY (OXALIPLATIN AND MANNITOL INJECTION (CHENYA))
     Route: 041
     Dates: start: 20230215, end: 20230215
  3. MANNITOL [Suspect]
     Active Substance: MANNITOL
     Indication: Colon cancer
     Dosage: 150 MG, DAILY (OXALIPLATIN AND MANNITOL INJECTION (CHENYA))
     Route: 041
     Dates: start: 20230215, end: 20230215
  4. CAPECITABINE [Suspect]
     Active Substance: CAPECITABINE
     Indication: Colon cancer
     Dosage: 1 G, UNKNOWN (D1-14)
     Route: 065
     Dates: start: 20230215, end: 20230228

REACTIONS (3)
  - Platelet count decreased [Recovering/Resolving]
  - White blood cell count decreased [Recovering/Resolving]
  - Neutrophil count decreased [Recovering/Resolving]

NARRATIVE: CASE EVENT DATE: 20230312
